FAERS Safety Report 9648630 (Version 1)
Quarter: 2013Q4

REPORT INFORMATION
  Report Type: Spontaneous
  Country: US (occurrence: US)
  Receive Date: 20131028
  Receipt Date: 20131028
  Transmission Date: 20140711
  Serious: No
  Sender: FDA-Public Use
  Company Number: US-PFIZER INC-2013307669

PATIENT
  Age: 50 Year
  Sex: Female
  Weight: 135 kg

DRUGS (2)
  1. LYRICA [Suspect]
     Indication: FIBROMYALGIA
     Dosage: 200 MG, 3X/DAY
     Dates: end: 2013
  2. LYRICA [Suspect]
     Dosage: 200 MG, 3X/DAY
     Dates: start: 2013

REACTIONS (1)
  - Weight increased [Unknown]
